FAERS Safety Report 5263621-2 (Version None)
Quarter: 2007Q1

REPORT INFORMATION
  Report Type: 
  Country: None (occurrence: None)
  Receive Date: 20070312
  Receipt Date: 20070312
  Transmission Date: 20070707
  Serious: No
  Sender: FDA-Public Use
  Company Number: None

PATIENT

DRUGS (3)
  1. ROTAGLIDE LUBRICANT [Suspect]
     Dosage: VIAL
  2. PROPOFOL [Suspect]
     Dosage: INJECTABLE EMULSION  VIAL
  3. PROPOFOL [Suspect]
     Dosage: INJECTABLE EMULSION  VIAL

REACTIONS (2)
  - CIRCUMSTANCE OR INFORMATION CAPABLE OF LEADING TO MEDICATION ERROR [None]
  - MEDICATION ERROR [None]
